FAERS Safety Report 4900880-7 (Version None)
Quarter: 2006Q1

REPORT INFORMATION
  Report Type: 
  Country: None (occurrence: None)
  Receive Date: 20060113
  Receipt Date: 20051130
  Transmission Date: 20060701
  Serious: No
  Sender: FDA-Public Use
  Company Number: 2005SP004216

PATIENT
  Sex: Female

DRUGS (4)
  1. LUNESTA [Suspect]
     Indication: ANXIETY
     Dosage: 3 MG;ORAL
     Route: 048
     Dates: start: 20051129, end: 20051130
  2. ORTHO TRI-CYCLEN [Concomitant]
  3. CITALOPRAN [Concomitant]
  4. SYNTHROID [Concomitant]

REACTIONS (1)
  - DYSGEUSIA [None]
